FAERS Safety Report 19439187 (Version 1)
Quarter: 2021Q2

REPORT INFORMATION
  Report Type: Spontaneous
  Country: US (occurrence: US)
  Receive Date: 20210618
  Receipt Date: 20210618
  Transmission Date: 20210717
  Serious: No
  Sender: FDA-Public Use
  Company Number: US-ALMIRALL, LLC-2021AQU000048

PATIENT

DRUGS (1)
  1. CORDRAN [Suspect]
     Active Substance: FLURANDRENOLIDE
     Indication: LICHEN PLANUS
     Dosage: UNK, QHS
     Route: 061

REACTIONS (2)
  - Off label use [Unknown]
  - Application site pruritus [Recovered/Resolved]
